FAERS Safety Report 18667237 (Version 3)
Quarter: 2022Q1

REPORT INFORMATION
  Report Type: Spontaneous
  Country: JP (occurrence: JP)
  Receive Date: 20201228
  Receipt Date: 20220202
  Transmission Date: 20220424
  Serious: Yes (Hospitalization, Other)
  Sender: FDA-Public Use
  Company Number: JP-SUN PHARMACEUTICAL INDUSTRIES LTD-2020RR-272568

PATIENT
  Age: 56 Year
  Sex: Male

DRUGS (6)
  1. SPRYCEL [Suspect]
     Active Substance: DASATINIB
     Indication: Chronic myeloid leukaemia
     Dosage: 100 MILLIGRAM, DAILY
     Route: 065
  2. IMATINIB [Suspect]
     Active Substance: IMATINIB
     Indication: Chronic myeloid leukaemia
     Route: 065
  3. BOSUTINIB [Suspect]
     Active Substance: BOSUTINIB
     Indication: Chronic myeloid leukaemia
     Dosage: UNK
     Route: 065
  4. NILOTINIB [Suspect]
     Active Substance: NILOTINIB
     Indication: Chronic myeloid leukaemia
     Route: 065
  5. LORATADINE [Concomitant]
     Active Substance: LORATADINE
     Indication: Rash
     Dosage: UNK, AS NEEDED
     Route: 065
  6. SULFAMETHOXAZOLE\TRIMETHOPRIM [Concomitant]
     Active Substance: SULFAMETHOXAZOLE\TRIMETHOPRIM
     Indication: Pneumocystis jirovecii pneumonia
     Route: 065

REACTIONS (2)
  - Interstitial lung disease [Recovering/Resolving]
  - Hepatotoxicity [Unknown]
